FAERS Safety Report 5852364-X (Version None)
Quarter: 2008Q3

REPORT INFORMATION
  Report Type: 
  Country: None (occurrence: None)
  Receive Date: 20080820
  Receipt Date: 20080820
  Transmission Date: 20090109
  Serious: No
  Sender: FDA-Public Use
  Company Number: None

PATIENT
  Age: 38 Year
  Sex: Male
  Weight: 90.7194 kg

DRUGS (2)
  1. OMEPRAZOLE [Suspect]
     Indication: THERMAL BURN
     Dosage: 20 DAILY PO
     Route: 048
     Dates: start: 20071101, end: 20080129
  2. RANITIDINE [Concomitant]

REACTIONS (2)
  - MUSCULAR WEAKNESS [None]
  - PAIN IN EXTREMITY [None]
